FAERS Safety Report 7437495-5 (Version None)
Quarter: 2011Q2

REPORT INFORMATION
  Report Type: 
  Country: None (occurrence: None)
  Receive Date: 20110426
  Receipt Date: 20110420
  Transmission Date: 20111010
  Serious: Yes (Death, Life-Threatening, Hospitalization)
  Sender: FDA-Public Use
  Company Number: JP-SANOFI-AVENTIS-2011SA017596

PATIENT
  Age: 63 Year
  Sex: Female
  Weight: 44 kg

DRUGS (19)
  1. KREMEZIN [Concomitant]
     Route: 048
     Dates: end: 20101108
  2. APIDRA [Suspect]
     Dosage: CONTINUOUS SUBCUTANEOUS INSULIN INFUSION (CSII)
     Route: 058
     Dates: start: 20100729, end: 20100805
  3. APIDRA [Suspect]
     Dosage: CONTINUOUS SUBCUTANEOUS INSULIN INFUSION (CSII)
     Route: 058
     Dates: start: 20100805, end: 20101112
  4. APIDRA [Suspect]
     Dosage: CONTINUOUS SUBCUTANEOUS INSULIN INFUSION (CSII)
     Route: 058
     Dates: start: 20100724, end: 20100727
  5. ALL OTHER THERAPEUTIC PRODUCTS [Concomitant]
     Indication: BRAIN CONTUSION
     Route: 048
     Dates: end: 20101007
  6. RENIVACE [Concomitant]
     Route: 048
     Dates: end: 20101112
  7. APIDRA [Suspect]
     Dosage: CONTINUOUS SUBCUTANEOUS INSULIN INFUSION (CSII)
     Route: 058
     Dates: start: 20100727, end: 20100729
  8. APIDRA [Suspect]
     Dosage: CONTINUOUS SUBCUTANEOUS INSULIN INFUSION (CSII)
     Route: 058
     Dates: start: 20100711, end: 20100712
  9. PLAVIX [Concomitant]
     Indication: PROPHYLAXIS
     Route: 048
     Dates: end: 20101112
  10. EXCEGRAN [Concomitant]
     Indication: BRAIN CONTUSION
     Route: 048
     Dates: start: 20101008, end: 20101112
  11. APIDRA [Suspect]
     Indication: DIABETES MELLITUS
     Dosage: CONTINUOUS SUBCUTANEOUS INSULIN INFUSION (CSII)
     Route: 058
     Dates: start: 20100709, end: 20100711
  12. APIDRA [Suspect]
     Dosage: CONTINUOUS SUBCUTANEOUS INSULIN INFUSION (CSII)
     Route: 058
     Dates: start: 20101112, end: 20101118
  13. APIDRA [Suspect]
     Dosage: CONTINUOUS SUBCUTANEOUS INSULIN INFUSION (CSII)
     Route: 058
     Dates: start: 20100713, end: 20100715
  14. APIDRA [Suspect]
     Dosage: CONTINUOUS SUBCUTANEOUS INSULIN INFUSION (CSII)
     Route: 058
     Dates: start: 20100715, end: 20100724
  15. METHYCOBAL [Concomitant]
     Route: 048
     Dates: end: 20101112
  16. APIDRA [Suspect]
     Dosage: CONTINUOUS SUBCUTANEOUS INSULIN INFUSION (CSII)
     Route: 058
     Dates: start: 20100712, end: 20100713
  17. JUVELA [Concomitant]
     Route: 048
     Dates: end: 20101112
  18. BLOPRESS [Concomitant]
     Route: 048
     Dates: end: 20101112
  19. CONIEL [Concomitant]
     Route: 048
     Dates: start: 20100721, end: 20101112

REACTIONS (6)
  - DIABETIC KETOACIDOSIS [None]
  - CEREBRAL INFARCTION [None]
  - CEREBRAL HAEMORRHAGE [None]
  - DIABETIC NEUROPATHY [None]
  - CARDIAC FAILURE [None]
  - VOMITING [None]
